FAERS Safety Report 4321903-2 (Version None)
Quarter: 2004Q1

REPORT INFORMATION
  Report Type: 
  Country: None (occurrence: None)
  Receive Date: 20040317
  Receipt Date: 20040302
  Transmission Date: 20041129
  Serious: Yes (Hospitalization)
  Sender: FDA-Public Use
  Company Number: 235689

PATIENT
  Sex: Female

DRUGS (3)
  1. NOVOSEVEN [Suspect]
     Indication: POST PROCEDURAL HAEMORRHAGE
     Dosage: INTRAVENOUS
     Route: 042
  2. EXACYL (TRANEXAMIC ACID) [Concomitant]
  3. PLATELETS [Concomitant]

REACTIONS (1)
  - PHLEBITIS [None]
